FAERS Safety Report 9447369 (Version 1)
Quarter: 2013Q3

REPORT INFORMATION
  Report Type: Report from Study
  Country: JP (occurrence: JP)
  Receive Date: 20130808
  Receipt Date: 20130808
  Transmission Date: 20140515
  Serious: Yes (Other)
  Sender: FDA-Public Use
  Company Number: JP-MERCK-1308JPN002121

PATIENT
  Age: 71 Year
  Sex: Male

DRUGS (33)
  1. FOSAPREPITANT DIMEGLUMINE [Suspect]
     Indication: PROPHYLAXIS OF NAUSEA AND VOMITING
     Dosage: 150 MG, QD
     Route: 041
     Dates: start: 20130225, end: 20130225
  2. FOSAPREPITANT DIMEGLUMINE [Suspect]
     Dosage: 150 MG, QD
     Route: 041
     Dates: start: 20130329, end: 20130329
  3. CISPLATIN [Suspect]
     Indication: PHARYNGEAL CANCER
     Dosage: 100 MG,DAILY
     Route: 042
     Dates: start: 20130225, end: 20130225
  4. CISPLATIN [Suspect]
     Dosage: 100 MG,DAILY
     Route: 042
     Dates: start: 20130329, end: 20130329
  5. TAXOTERE [Suspect]
     Indication: PHARYNGEAL CANCER
     Dosage: 100 MG,DAILY
     Route: 042
     Dates: start: 20130225, end: 20130225
  6. TAXOTERE [Suspect]
     Dosage: 100 MG, DAILY
     Route: 042
     Dates: start: 20130329, end: 20130329
  7. DECADRON PHOSPHATE INJECTION [Suspect]
     Indication: PROPHYLAXIS OF NAUSEA AND VOMITING
     Dosage: 6.6 MG, DAILY
     Route: 042
     Dates: start: 20130225, end: 20130227
  8. DECADRON PHOSPHATE INJECTION [Suspect]
     Dosage: 3.3 MG, DAILY
     Route: 042
     Dates: start: 20130228, end: 20130228
  9. DECADRON PHOSPHATE INJECTION [Suspect]
     Dosage: 1.65 MG, DAILY
     Route: 042
     Dates: start: 20130301, end: 20130301
  10. DECADRON PHOSPHATE INJECTION [Suspect]
     Dosage: 6.6 MG, DAILY
     Route: 042
     Dates: start: 20130329, end: 20130331
  11. DECADRON PHOSPHATE INJECTION [Suspect]
     Dosage: 3.3 MG, DAILY
     Route: 042
     Dates: start: 20130401, end: 20130401
  12. DECADRON PHOSPHATE INJECTION [Suspect]
     Dosage: 1.65 MG, DAILY
     Route: 042
     Dates: start: 20130402, end: 20130402
  13. FLUOROURACIL [Suspect]
     Indication: PHARYNGEAL CANCER
     Dosage: 1180 MG, DAILY
     Dates: start: 20130225, end: 20130228
  14. FLUOROURACIL [Suspect]
     Dosage: 1162 MG, DAILY
     Dates: start: 20130329, end: 20130401
  15. GLACTIV [Concomitant]
     Dosage: 25MG,50MG,100MG
     Route: 048
     Dates: start: 20130225, end: 20130301
  16. GLACTIV [Concomitant]
     Dosage: 25MG,50MG,100MG
     Route: 048
     Dates: start: 20130329, end: 20130402
  17. ALOXI [Concomitant]
     Dosage: UNK
     Dates: start: 20130225, end: 20130225
  18. ALOXI [Concomitant]
     Dosage: UNK
     Dates: start: 20130329, end: 20130329
  19. GASTER [Concomitant]
     Dosage: UNK
     Route: 048
     Dates: start: 20130225, end: 20130301
  20. GASTER [Concomitant]
     Dosage: UNK
     Route: 048
     Dates: start: 20130329, end: 20130402
  21. PIOGLITAZONE HYDROCHLORIDE [Concomitant]
     Dosage: UNK
     Dates: start: 20130225, end: 20130301
  22. PIOGLITAZONE HYDROCHLORIDE [Concomitant]
     Dosage: UNK
     Dates: start: 20130329, end: 20130402
  23. ALLOPURINOL [Concomitant]
     Dosage: UNK
     Dates: start: 20130225, end: 20130301
  24. ALLOPURINOL [Concomitant]
     Dosage: UNK
     Dates: start: 20130329, end: 20130402
  25. ECARD HD [Concomitant]
     Dosage: UNK
     Dates: start: 20130225, end: 20130301
  26. ECARD HD [Concomitant]
     Dosage: UNK
     Dates: start: 20130329, end: 20130402
  27. THYRADIN [Concomitant]
     Dosage: UNK
     Dates: start: 20130225, end: 20130301
  28. THYRADIN [Concomitant]
     Dosage: UNK
     Dates: start: 20130329, end: 20130402
  29. ALMYLAR [Concomitant]
     Dosage: UNK
     Dates: start: 20130225, end: 20130301
  30. ALMYLAR [Concomitant]
     Dosage: UNK
     Dates: start: 20130329, end: 20130401
  31. CRESTOR [Concomitant]
     Dosage: UNK
     Dates: start: 20130225, end: 20130301
  32. CRESTOR [Concomitant]
     Dosage: UNK
     Dates: start: 20130329, end: 20130401
  33. TAKEPRON [Concomitant]
     Dosage: UNK
     Dates: start: 20130329, end: 20130402

REACTIONS (2)
  - Large intestine perforation [Unknown]
  - Hot flush [Unknown]
